FAERS Safety Report 7789804-5 (Version None)
Quarter: 2011Q3

REPORT INFORMATION
  Report Type: 
  Country: None (occurrence: None)
  Receive Date: 20110930
  Receipt Date: 20110613
  Transmission Date: 20111222
  Serious: No
  Sender: FDA-Public Use
  Company Number: US-ASTRAZENECA-2011SE35910

PATIENT
  Age: 64 Year
  Sex: Female
  Weight: 93 kg

DRUGS (4)
  1. SIMVASTATIN [Concomitant]
  2. LEVOTHYROXINE [Concomitant]
  3. LAMICTAL [Concomitant]
  4. ARIMIDEX [Suspect]
     Route: 048
     Dates: start: 20110101

REACTIONS (5)
  - ABDOMINAL DISTENSION [None]
  - HYPERHIDROSIS [None]
  - HEADACHE [None]
  - HOT FLUSH [None]
  - DIARRHOEA [None]
